FAERS Safety Report 4531063-0 (Version None)
Quarter: 2004Q4

REPORT INFORMATION
  Report Type: 
  Country: None (occurrence: None)
  Receive Date: 20041217
  Receipt Date: 20041115
  Transmission Date: 20050328
  Serious: Yes (Hospitalization, Other)
  Sender: FDA-Public Use
  Company Number: PHRM2004FR03351

PATIENT
  Age: 67 Year
  Sex: Male

DRUGS (2)
  1. GLEEVEC [Suspect]
     Indication: CHRONIC MYELOID LEUKAEMIA
     Dosage: UNK, UNK
     Route: 048
     Dates: start: 20030207, end: 20041115
  2. GLEEVEC [Suspect]
     Dosage: 400 MG PER DAY
     Route: 048

REACTIONS (7)
  - HYPERAEMIA [None]
  - MACULAR OEDEMA [None]
  - MACULOPATHY [None]
  - METAMORPHOPSIA [None]
  - RETINAL DISORDER [None]
  - RETINAL HAEMORRHAGE [None]
  - RETINAL OPERATION [None]
